FAERS Safety Report 9869469 (Version 1)
Quarter: 2014Q1

REPORT INFORMATION
  Report Type: Spontaneous
  Country: CN (occurrence: None)
  Receive Date: 20140203
  Receipt Date: 20140203
  Transmission Date: 20141002
  Serious: Yes (Hospitalization)
  Sender: FDA-Public Use
  Company Number: 152494

PATIENT
  Age: 18 Year
  Sex: Female

DRUGS (2)
  1. CYCLOSPORINE [Suspect]
     Indication: PROPHYLAXIS AGAINST TRANSPLANT REJECTION
  2. VORICONAZOLE [Concomitant]

REACTIONS (6)
  - Drug interaction [None]
  - Leukoencephalopathy [None]
  - Trismus [None]
  - Convulsion [None]
  - Epilepsy [None]
  - Fungal infection [None]
